FAERS Safety Report 7971115-6 (Version None)
Quarter: 2011Q4

REPORT INFORMATION
  Report Type: 
  Country: None (occurrence: None)
  Receive Date: 20111212
  Receipt Date: 20111212
  Transmission Date: 20120403
  Serious: No
  Sender: FDA-Public Use
  Company Number: None

PATIENT
  Sex: Female
  Weight: 65.77 kg

DRUGS (1)
  1. BOTOX [Suspect]
     Indication: MIGRAINE

REACTIONS (4)
  - THERAPEUTIC RESPONSE DECREASED [None]
  - CONFUSIONAL STATE [None]
  - HYPOAESTHESIA [None]
  - FIBROMYALGIA [None]
